FAERS Safety Report 8641699 (Version 2)
Quarter: 2012Q4

REPORT INFORMATION
  Report Type: 
  Country: US (occurrence: US)
  Receive Date: 20120628
  Receipt Date: 20120906
  Transmission Date: 20130627
  Serious: Yes (Hospitalization, Other)
  Sender: FDA-Public Use
  Company Number: US-BAYER-2012-063781

PATIENT
  Age: 50 Year
  Sex: Female
  Weight: 45.35 kg

DRUGS (4)
  1. BETASERON [Suspect]
     Indication: MULTIPLE SCLEROSIS
     Dosage: 4 mg, QOD
     Route: 058
     Dates: start: 2000
  2. METOPROLOL [Concomitant]
     Indication: HEART RATE INCREASED
     Dosage: 5 mg, BID
     Dates: start: 2008
  3. OXYBUTYNIN [Concomitant]
     Indication: URINARY INCONTINENCE
     Dosage: 5 mg, QD
     Dates: start: 2002, end: 2009
  4. PREDNISONE [Concomitant]

REACTIONS (4)
  - Nephropathy [Unknown]
  - Influenza [Unknown]
  - Asthenia [Unknown]
  - Blood potassium increased [Not Recovered/Not Resolved]
